FAERS Safety Report 9525598 (Version 1)
Quarter: 2013Q3

REPORT INFORMATION
  Report Type: Spontaneous
  Country: US (occurrence: US)
  Receive Date: 20130916
  Receipt Date: 20130916
  Transmission Date: 20140515
  Serious: Yes (Hospitalization)
  Sender: FDA-Public Use
  Company Number: US-MYLANLABS-2013S1019898

PATIENT
  Age: 56 Year
  Sex: Male

DRUGS (1)
  1. FLUOROURACIL [Suspect]
     Indication: RECTAL CANCER STAGE II
     Dosage: CONTINUOUS INFUSION OF 225 MG/M2/24
     Route: 041

REACTIONS (1)
  - Cardiotoxicity [Recovered/Resolved]
